FAERS Safety Report 4511088-1 (Version None)
Quarter: 2004Q4

REPORT INFORMATION
  Report Type: 
  Country: None (occurrence: None)
  Receive Date: 20041015
  Receipt Date: 20040130
  Transmission Date: 20050328
  Serious: Yes (Other)
  Sender: FDA-Public Use
  Company Number: 2004006516

PATIENT
  Age: 9 Year
  Sex: Female

DRUGS (2)
  1. NEURONTIN [Suspect]
     Indication: CONVULSION
     Dosage: ORAL
     Route: 048
  2. LEUPRORELIN ACETATE (LEUPRORELIN ACETATE) [Concomitant]

REACTIONS (4)
  - CONVULSION [None]
  - DEHYDRATION [None]
  - INTENTIONAL OVERDOSE [None]
  - MEDICATION ERROR [None]
